FAERS Safety Report 4642172-X (Version None)
Quarter: 2005Q2

REPORT INFORMATION
  Report Type: 
  Country: None (occurrence: None)
  Receive Date: 20050421
  Receipt Date: 20050411
  Transmission Date: 20051028
  Serious: Yes (Other)
  Sender: FDA-Public Use
  Company Number: 002#4#2005-00084

PATIENT
  Age: 73 Year
  Sex: Male

DRUGS (3)
  1. TRILYTE-WITH-FLAVOR-PACKS (POLYETHYLENE GLYCOL 3350) [Suspect]
     Indication: COLONOSCOPY
     Dosage: 41, 1ONCE, ORAL
     Route: 048
     Dates: start: 20050216, end: 20050216
  2. BISACODYL [Suspect]
     Indication: COLONOSCOPY
     Dosage: 3 IN 1 D ORAL
     Route: 048
     Dates: start: 20050216, end: 20050216
  3. UNSPECIFIED CONCOMITANT DRUGS [Concomitant]

REACTIONS (3)
  - COLITIS ISCHAEMIC [None]
  - POST PROCEDURAL HAEMORRHAGE [None]
  - PROCEDURAL COMPLICATION [None]
